FAERS Safety Report 12634765 (Version 1)
Quarter: 2016Q3

REPORT INFORMATION
  Report Type: Spontaneous
  Country: GB (occurrence: None)
  Receive Date: 20160808
  Receipt Date: 20160808
  Transmission Date: 20161109
  Serious: Yes (Other)
  Sender: FDA-Public Use
  Company Number: None

PATIENT
  Age: 48 Year
  Sex: Male
  Weight: 70 kg

DRUGS (1)
  1. CIPROFLOXACIN BAYER [Suspect]
     Active Substance: CIPROFLOXACIN
     Indication: DIVERTICULITIS
     Dosage: 2 TABLET(S) TWICE A DAY TAKEN BY MOUTH
     Route: 048
     Dates: start: 20160713, end: 20160713

REACTIONS (10)
  - Myositis [None]
  - Arthritis [None]
  - Pain [None]
  - Nausea [None]
  - Insomnia [None]
  - Fatigue [None]
  - Depression [None]
  - Dizziness [None]
  - Anxiety [None]
  - Tendon disorder [None]

NARRATIVE: CASE EVENT DATE: 20160715
